FAERS Safety Report 22021223 (Version 2)
Quarter: 2023Q1

REPORT INFORMATION
  Report Type: Spontaneous
  Country: US (occurrence: US)
  Receive Date: 20230222
  Receipt Date: 20230303
  Transmission Date: 20230418
  Serious: Yes (Death)
  Sender: FDA-Public Use
  Company Number: US-002147023-NVSC2023US041088

PATIENT

DRUGS (2)
  1. KYMRIAH [Suspect]
     Active Substance: TISAGENLECLEUCEL
     Indication: Non-Hodgkin^s lymphoma
     Dosage: UNK UNK, ONCE/SINGLE
     Route: 042
  2. KYMRIAH [Suspect]
     Active Substance: TISAGENLECLEUCEL
     Indication: Diffuse large B-cell lymphoma

REACTIONS (4)
  - Acute myeloid leukaemia [Fatal]
  - Second primary malignancy [Fatal]
  - Gastrointestinal cancer metastatic [Fatal]
  - Genitourinary tract neoplasm [Fatal]
